FAERS Safety Report 9888885 (Version 2)
Quarter: 2014Q2

REPORT INFORMATION
  Report Type: Spontaneous
  Country: US (occurrence: US)
  Receive Date: 20140211
  Receipt Date: 20140404
  Transmission Date: 20141212
  Serious: Yes (Other)
  Sender: FDA-Public Use
  Company Number: US-GLAXOSMITHKLINE-A1054806A

PATIENT
  Sex: Female

DRUGS (3)
  1. VOTRIENT [Suspect]
     Indication: RENAL CELL CARCINOMA
     Dosage: 200MG UNKNOWN
     Route: 048
  2. BLOOD PRESSURE MEDICATION [Concomitant]
  3. PAIN KILLERS [Concomitant]

REACTIONS (7)
  - Haemorrhage [Unknown]
  - Platelet count decreased [Unknown]
  - Hair colour changes [Unknown]
  - Off label use [Unknown]
  - Memory impairment [Unknown]
  - Contusion [Unknown]
  - Bone pain [Unknown]
